FAERS Safety Report 13433185 (Version 1)
Quarter: 2017Q2

REPORT INFORMATION
  Report Type: Spontaneous
  Country: DK (occurrence: DK)
  Receive Date: 20170412
  Receipt Date: 20170412
  Transmission Date: 20170830
  Serious: Yes (Hospitalization)
  Sender: FDA-Public Use
  Company Number: DK-TEVA-755881ACC

PATIENT
  Age: 71 Year
  Sex: Female
  Weight: 50 kg

DRUGS (11)
  1. LITAREX [Suspect]
     Active Substance: LITHIUM CITRATE
     Indication: DEPRESSION
     Dosage: 12 MILLIMOL DAILY;
     Route: 048
  2. SEROQUEL [Concomitant]
     Active Substance: QUETIAPINE FUMARATE
     Indication: PRODUCT USED FOR UNKNOWN INDICATION
  3. FURIX [Concomitant]
     Active Substance: FUROSEMIDE
     Indication: PRODUCT USED FOR UNKNOWN INDICATION
  4. BUVENTOL EASYHALER [Concomitant]
     Active Substance: ALBUTEROL SULFATE
     Indication: PRODUCT USED FOR UNKNOWN INDICATION
  5. PINEX [Concomitant]
     Active Substance: ACETAMINOPHEN
     Indication: PRODUCT USED FOR UNKNOWN INDICATION
  6. NORITREN [Concomitant]
     Active Substance: NORTRIPTYLINE HYDROCHLORIDE
     Indication: DEPRESSION
  7. COZAAR [Concomitant]
     Active Substance: LOSARTAN POTASSIUM
     Indication: PRODUCT USED FOR UNKNOWN INDICATION
  8. GIONA EASYHALER [Concomitant]
     Indication: PRODUCT USED FOR UNKNOWN INDICATION
  9. KALEORID [Concomitant]
     Active Substance: POTASSIUM CHLORIDE
     Indication: PRODUCT USED FOR UNKNOWN INDICATION
  10. MAREVAN [Suspect]
     Active Substance: WARFARIN SODIUM
     Indication: PULMONARY EMBOLISM
     Route: 048
     Dates: start: 20170103
  11. SIMVASTATIN ^ACTAVIS^ [Concomitant]
     Active Substance: SIMVASTATIN
     Indication: PRODUCT USED FOR UNKNOWN INDICATION

REACTIONS (7)
  - Toxicity to various agents [Recovering/Resolving]
  - Gastroenteritis [Unknown]
  - Hypermetabolism [Unknown]
  - Diarrhoea [Unknown]
  - Hypercalcaemia [Unknown]
  - International normalised ratio increased [Recovered/Resolved]
  - Vomiting [Unknown]

NARRATIVE: CASE EVENT DATE: 20170322
